FAERS Safety Report 17411777 (Version 1)
Quarter: 2020Q1

REPORT INFORMATION
  Report Type: Other
  Country: DE (occurrence: DE)
  Receive Date: 20200213
  Receipt Date: 20200213
  Transmission Date: 20200409
  Serious: Yes (Other)
  Sender: FDA-Public Use
  Company Number: DE-CELLTRION INC.-2019DE020310

PATIENT

DRUGS (3)
  1. CAPECITABINE. [Suspect]
     Active Substance: CAPECITABINE
     Dosage: UNK
     Route: 048
  2. CAPECITABINE. [Suspect]
     Active Substance: CAPECITABINE
     Indication: BREAST CANCER
     Dosage: PATIENT RECEIVED MOST RECENT DOSE OF CAPECITABINE (4000 MG) DAILY ON 24/MAR/2019.
     Route: 048
     Dates: start: 20190318
  3. TRASTUZUMAB (UNKNOWN) [Suspect]
     Active Substance: TRASTUZUMAB
     Indication: BREAST CANCER
     Dosage: 390 MG, EVERY 3 WEEKS (MOST RECENT DOSE ADMINISTERED ON 13/AUG/2019)
     Route: 042
     Dates: start: 20190318

REACTIONS (4)
  - Dyspnoea [Not Recovered/Not Resolved]
  - Stomatitis [Recovered/Resolved]
  - Pleural effusion [Recovering/Resolving]
  - Respiratory disorder [Not Recovered/Not Resolved]

NARRATIVE: CASE EVENT DATE: 20190325
